FAERS Safety Report 8609241-0 (Version None)
Quarter: 2012Q3

REPORT INFORMATION
  Report Type: 
  Country: None (occurrence: None)
  Receive Date: 20120821
  Receipt Date: 20120814
  Transmission Date: 20120928
  Serious: Yes (Hospitalization)
  Sender: FDA-Public Use
  Company Number: NZ-B.I. PHARMACEUTICALS,INC./RIDGEFIELD-2012-AU-01430AU

PATIENT
  Age: 77 Year
  Sex: Male

DRUGS (6)
  1. ATENOLOL [Concomitant]
     Indication: ESSENTIAL HYPERTENSION
     Dosage: 50 MG
     Route: 048
  2. SIMVASTATIN [Suspect]
     Indication: HYPERCHOLESTEROLAEMIA
     Dosage: 40 MG
     Route: 048
  3. PRADAXA [Suspect]
     Indication: PROPHYLAXIS
     Dosage: 300 MG
     Dates: end: 20111228
  4. DIGOXIN [Concomitant]
     Indication: ATRIAL FIBRILLATION
     Dosage: 125 MCG
     Route: 048
  5. DIGOXIN [Concomitant]
     Indication: ATRIAL FLUTTER
  6. FUROSEMIDE [Concomitant]
     Indication: CARDIAC FAILURE
     Dosage: 120 MG
     Route: 048

REACTIONS (2)
  - HEPATOCELLULAR INJURY [None]
  - JAUNDICE [None]
